FAERS Safety Report 5064358-5 (Version None)
Quarter: 2006Q3

REPORT INFORMATION
  Report Type: 
  Country: None (occurrence: None)
  Receive Date: 20060728
  Receipt Date: 20060719
  Transmission Date: 20061208
  Serious: Yes (Other)
  Sender: FDA-Public Use
  Company Number: CA-JNJFOC-20060704529

PATIENT
  Sex: Male

DRUGS (2)
  1. CHILDREN'S TYLENOL LIQUID BUBBLEGUM [Suspect]
     Indication: PYREXIA
     Dosage: DOSE REDUCED
     Route: 048
  2. CHILDREN'S TYLENOL LIQUID BUBBLEGUM [Suspect]
     Indication: ABDOMINAL PAIN UPPER
     Dosage: ^RECOMMENDED DOSE^, ORAL
     Route: 048

REACTIONS (1)
  - HALLUCINATION [None]
